FAERS Safety Report 4552101-5 (Version None)
Quarter: 2005Q1

REPORT INFORMATION
  Report Type: 
  Country: None (occurrence: None)
  Receive Date: 20050112
  Receipt Date: 20041222
  Transmission Date: 20050727
  Serious: Yes (Other)
  Sender: FDA-Public Use
  Company Number: USA041286837

PATIENT
  Age: 12 Year
  Sex: Female

DRUGS (1)
  1. STRATTERA [Suspect]
     Dosage: 15 MG DAY
     Dates: start: 20041217

REACTIONS (6)
  - ANGINA PECTORIS [None]
  - CRYING [None]
  - DIZZINESS [None]
  - FALL [None]
  - FATIGUE [None]
  - FEAR [None]
